FAERS Safety Report 18880878 (Version 2)
Quarter: 2021Q2

REPORT INFORMATION
  Report Type: Spontaneous
  Country: US (occurrence: US)
  Receive Date: 20210212
  Receipt Date: 20210519
  Transmission Date: 20210717
  Serious: Yes (Death, Other)
  Sender: FDA-Public Use
  Company Number: US-BRISTOL-MYERS SQUIBB COMPANY-BMS-2021-013971

PATIENT
  Age: 40 Year
  Sex: Female

DRUGS (3)
  1. OPDIVO [Suspect]
     Active Substance: NIVOLUMAB
     Indication: GASTROINTESTINAL NEOPLASM
     Dosage: 240 MILLIGRAM, Q2WK
     Route: 048
     Dates: start: 20210119
  2. OPDIVO [Suspect]
     Active Substance: NIVOLUMAB
     Indication: METASTATIC NEOPLASM
  3. OPDIVO [Suspect]
     Active Substance: NIVOLUMAB
     Indication: OESOPHAGEAL ADENOCARCINOMA

REACTIONS (2)
  - Intentional product use issue [Unknown]
  - Death [Fatal]
